FAERS Safety Report 19689695 (Version 1)
Quarter: 2021Q3

REPORT INFORMATION
  Report Type: Spontaneous
  Country: US (occurrence: US)
  Receive Date: 20210811
  Receipt Date: 20210811
  Transmission Date: 20211014
  Serious: No
  Sender: FDA-Public Use
  Company Number: None

PATIENT
  Sex: Male

DRUGS (1)
  1. ICATIBANT ACETATE SYR 30MG/3ML TEVA PHARMACEUTICALS USA [Suspect]
     Active Substance: ICATIBANT ACETATE
     Indication: DRUG THERAPY
     Route: 058
     Dates: start: 202104

REACTIONS (1)
  - Gastrointestinal disorder [None]
